FAERS Safety Report 12459594 (Version 1)
Quarter: 2016Q2

REPORT INFORMATION
  Report Type: Spontaneous
  Country: US (occurrence: US)
  Receive Date: 20160613
  Receipt Date: 20160613
  Transmission Date: 20160815
  Serious: Yes (Other)
  Sender: FDA-Public Use
  Company Number: US-ACTAVIS-2016-12043

PATIENT
  Age: 13 Year
  Sex: Female
  Weight: 60 kg

DRUGS (1)
  1. VANCOMYCIN HCL (WATSON LABORATORIES) [Suspect]
     Active Substance: VANCOMYCIN
     Indication: PRODUCT USED FOR UNKNOWN INDICATION
     Dosage: 8 G, SINGLE
     Route: 042

REACTIONS (4)
  - Hypertension [Not Recovered/Not Resolved]
  - Overdose [Recovered/Resolved]
  - Drug dispensing error [Recovered/Resolved]
  - Nephropathy toxic [Recovered/Resolved]
